FAERS Safety Report 17041993 (Version 1)
Quarter: 2019Q4

REPORT INFORMATION
  Report Type: Spontaneous
  Country: GB (occurrence: GB)
  Receive Date: 20191118
  Receipt Date: 20191118
  Transmission Date: 20200122
  Serious: Yes (Other)
  Sender: FDA-Public Use
  Company Number: GB-TEVA-2019-GB-1138196

PATIENT
  Age: 30 Year
  Sex: Male
  Weight: 42 kg

DRUGS (1)
  1. LEVETIRACETAM. [Suspect]
     Active Substance: LEVETIRACETAM
     Dosage: IDEALLY GRADUALLY INCREASING (500 MILLIGRAM PER DAY)
     Dates: start: 20190130

REACTIONS (1)
  - Anaphylactic reaction [Recovered/Resolved]
